FAERS Safety Report 19483058 (Version 1)
Quarter: 2021Q3

REPORT INFORMATION
  Report Type: Spontaneous
  Country: DE (occurrence: DE)
  Receive Date: 20210701
  Receipt Date: 20210701
  Transmission Date: 20211014
  Serious: Yes (Hospitalization, Congenital Anomaly, Other)
  Sender: FDA-Public Use
  Company Number: DE-TORRENT-00020525

PATIENT
  Age: 1 Day
  Sex: Male
  Weight: 3 kg

DRUGS (3)
  1. PROMETHAZINE [Suspect]
     Active Substance: PROMETHAZINE HYDROCHLORIDE
     Indication: PANIC ATTACK
     Dosage: 150 [MG/D ]/ 5 X 30 MG DAILY, 5 SEPARATED DOSES
     Route: 064
  2. CLEXANE [Concomitant]
     Active Substance: ENOXAPARIN SODIUM
     Indication: FACTOR V DEFICIENCY
     Dosage: 40 [MG/D ]
     Route: 064
  3. SERTRALINE [Suspect]
     Active Substance: SERTRALINE HYDROCHLORIDE
     Indication: DEPRESSION
     Dosage: 150 [MG/D ]
     Route: 064

REACTIONS (9)
  - Tonic convulsion [Unknown]
  - Congenital megaureter [Unknown]
  - Respiratory disorder neonatal [Recovered/Resolved]
  - Hypermetropia [Not Recovered/Not Resolved]
  - Cryptorchism [Unknown]
  - Strabismus [Not Recovered/Not Resolved]
  - Hypertonia neonatal [Unknown]
  - Foetal exposure during pregnancy [Unknown]
  - Agitation neonatal [Recovered/Resolved]

NARRATIVE: CASE EVENT DATE: 20200531
